FAERS Safety Report 7010305-6 (Version None)
Quarter: 2010Q3

REPORT INFORMATION
  Report Type: 
  Country: None (occurrence: None)
  Receive Date: 20100923
  Receipt Date: 20100920
  Transmission Date: 20110219
  Serious: Yes (Hospitalization)
  Sender: FDA-Public Use
  Company Number: A0882742A

PATIENT
  Age: 79 Year
  Sex: Female

DRUGS (1)
  1. AVANDIA [Suspect]
     Dosage: 4MG PER DAY
     Dates: start: 20070101, end: 20070901

REACTIONS (2)
  - ACUTE CORONARY SYNDROME [None]
  - CARDIAC FAILURE CONGESTIVE [None]
